FAERS Safety Report 7593547-0 (Version None)
Quarter: 2011Q2

REPORT INFORMATION
  Report Type: 
  Country: None (occurrence: None)
  Receive Date: 20110610
  Receipt Date: 20100810
  Transmission Date: 20111010
  Serious: Yes (Disabling)
  Sender: FDA-Public Use
  Company Number: WAES 1008USA01176

PATIENT
  Sex: Female

DRUGS (3)
  1. ALPHAGAN [Concomitant]
  2. COSOPT [Suspect]
     Indication: OPEN ANGLE GLAUCOMA
     Dosage: 2 DRPS/BID/OPHT
     Route: 047
  3. COSOPT [Suspect]
     Indication: OPEN ANGLE GLAUCOMA
     Dosage: 2 DRPS/BID/OPHT
     Route: 047
     Dates: end: 20091001

REACTIONS (1)
  - BLEPHARITIS [None]
